FAERS Safety Report 13518403 (Version 1)
Quarter: 2017Q2

REPORT INFORMATION
  Report Type: Spontaneous
  Country: US (occurrence: US)
  Receive Date: 20170505
  Receipt Date: 20170505
  Transmission Date: 20170830
  Serious: Yes (Disabling)
  Sender: FDA-Public Use
  Company Number: None

PATIENT
  Age: 52 Year
  Sex: Female
  Weight: 64.8 kg

DRUGS (8)
  1. TURKEY TAIL MUSHROOM [Concomitant]
  2. CALCIUM CITRATE [Concomitant]
     Active Substance: CALCIUM CITRATE
  3. PROTECTIVE BREAST FORMULA [Concomitant]
  4. COQ10 [Concomitant]
     Active Substance: UBIDECARENONE
  5. ASPRIN [Concomitant]
     Active Substance: ASPIRIN
  6. VITAMIN D3 [Concomitant]
     Active Substance: CHOLECALCIFEROL
  7. FISH OIL [Concomitant]
     Active Substance: FISH OIL
  8. TAMOXIFEN CITRA USP [Suspect]
     Active Substance: TAMOXIFEN CITRATE
     Indication: BREAST CANCER
     Dosage: ?          QUANTITY:1 TABLET(S);?
     Route: 048
     Dates: start: 20160401, end: 20160916

REACTIONS (5)
  - Tendonitis [None]
  - Musculoskeletal pain [None]
  - Pain in extremity [None]
  - Joint range of motion decreased [None]
  - Periarthritis [None]

NARRATIVE: CASE EVENT DATE: 20160505
